FAERS Safety Report 8306831-X (Version None)
Quarter: 2012Q2

REPORT INFORMATION
  Report Type: 
  Country: None (occurrence: None)
  Receive Date: 20120420
  Receipt Date: 20120412
  Transmission Date: 20120825
  Serious: Yes (Other)
  Sender: FDA-Public Use
  Company Number: 2012SP019625

PATIENT
  Sex: Female

DRUGS (2)
  1. PEG-INTRON [Suspect]
     Indication: HEPATITIS C
     Dates: start: 20120412
  2. RIBAVIRIN [Suspect]
     Indication: HEPATITIS C
     Dates: start: 20120412

REACTIONS (6)
  - DEREALISATION [None]
  - FRACTURE [None]
  - MEMORY IMPAIRMENT [None]
  - NAIL PSORIASIS [None]
  - ECZEMA [None]
  - DRUG WITHDRAWAL SYNDROME [None]
